FAERS Safety Report 24028402 (Version 1)
Quarter: 2024Q2

REPORT INFORMATION
  Report Type: Report from Study
  Country: GB (occurrence: GB)
  Receive Date: 20240628
  Receipt Date: 20240628
  Transmission Date: 20240715
  Serious: Yes (Other)
  Sender: FDA-Public Use
  Company Number: GB-MYLANLABS-2024M1057188

PATIENT
  Sex: Female

DRUGS (8)
  1. LAMOTRIGINE [Suspect]
     Active Substance: LAMOTRIGINE
     Indication: Seizure
     Dosage: UNK
     Route: 065
  2. PREDNISOLONE [Concomitant]
     Active Substance: PREDNISOLONE
     Indication: Autoinflammatory disease
     Dosage: 30 MILLIGRAM, QD,SCHEDULED TO WEAN OFF BY 5 MG PER WEEK TO 5 MG DAILY
     Route: 048
  3. PREDNISOLONE [Concomitant]
     Active Substance: PREDNISOLONE
     Dosage: 15 MILLIGRAM, QD
     Route: 048
  4. TOCILIZUMAB [Concomitant]
     Active Substance: TOCILIZUMAB
     Indication: Autoinflammatory disease
     Dosage: 12 MILLIGRAM/KILOGRAM, BIWEEKLY
     Route: 042
  5. TOCILIZUMAB [Concomitant]
     Active Substance: TOCILIZUMAB
     Dosage: 6 MILLIGRAM/KILOGRAM, BIWEEKLY
     Route: 042
  6. TOCILIZUMAB [Concomitant]
     Active Substance: TOCILIZUMAB
     Indication: Autoinflammatory disease
     Dosage: 162 MILLIGRAM, BIWEEKLY
     Route: 058
  7. TOCILIZUMAB [Concomitant]
     Active Substance: TOCILIZUMAB
     Dosage: UNK, THERAPY DISCONTINUED FOLLOWED BY RE-INITIATION
     Route: 058
  8. BARICITINIB [Concomitant]
     Active Substance: BARICITINIB
     Indication: Autoinflammatory disease
     Dosage: 2 MILLIGRAM, TID, THRICE DAILY
     Route: 065

REACTIONS (1)
  - Drug ineffective [Unknown]
